FAERS Safety Report 24299754 (Version 1)
Quarter: 2024Q3

REPORT INFORMATION
  Report Type: Spontaneous
  Country: CA (occurrence: CA)
  Receive Date: 20240909
  Receipt Date: 20240909
  Transmission Date: 20241017
  Serious: No
  Sender: JAZZ
  Company Number: CA-JAZZ PHARMACEUTICALS-2024-CA-005670

PATIENT
  Age: 4 Year
  Sex: Female

DRUGS (1)
  1. RYLAZE [Suspect]
     Active Substance: ASPARAGINASE ERWINIA CHRYSANTHEMI (RECOMBINANT)-RYWN
     Indication: Product used for unknown indication

REACTIONS (1)
  - Off label use [Unknown]
